FAERS Safety Report 7304622 (Version 3)
Quarter: 2015Q4

REPORT INFORMATION
  Report Type: Report from Study
  Country: US (occurrence: US)
  Receive Date: 20100304
  Receipt Date: 20151203
  Transmission Date: 20160305
  Serious: Yes (Hospitalization, Other)
  Sender: FDA-Public Use
  Company Number: US-BIOGENIDEC-2010BI006262

PATIENT
  Age: 21 Year
  Sex: Female

DRUGS (3)
  1. TYSABRI [Suspect]
     Active Substance: NATALIZUMAB
     Indication: MULTIPLE SCLEROSIS
     Route: 042
     Dates: start: 20101006, end: 20130318
  2. TYSABRI [Suspect]
     Active Substance: NATALIZUMAB
     Indication: MULTIPLE SCLEROSIS
     Route: 042
     Dates: start: 20090318, end: 20100128
  3. TYSABRI [Suspect]
     Active Substance: NATALIZUMAB
     Indication: MULTIPLE SCLEROSIS
     Route: 042
     Dates: start: 20151123

REACTIONS (13)
  - Respiratory disorder [Recovered/Resolved]
  - Muscle spasms [Recovered/Resolved]
  - White blood cell count increased [Recovered/Resolved]
  - Red blood cell count increased [Recovered/Resolved]
  - Meningitis bacterial [Recovered/Resolved]
  - Fatigue [Not Recovered/Not Resolved]
  - Herpes zoster meningitis [Recovered/Resolved]
  - Central nervous system lesion [Not Recovered/Not Resolved]
  - White blood cell disorder [Recovered/Resolved]
  - Neck pain [Not Recovered/Not Resolved]
  - Gait disturbance [Unknown]
  - Headache [Not Recovered/Not Resolved]
  - Varicella zoster virus infection [Recovered/Resolved]

NARRATIVE: CASE EVENT DATE: 2009
